FAERS Safety Report 5048336-8 (Version None)
Quarter: 2006Q3

REPORT INFORMATION
  Report Type: 
  Country: None (occurrence: None)
  Receive Date: 20060711
  Receipt Date: 20060704
  Transmission Date: 20061208
  Serious: Yes (Other)
  Sender: FDA-Public Use
  Company Number: BE-BOEHRINGER INGELHEIM PHARMACEUTICALS, INC.-2006-DE-03382GD

PATIENT
  Age: 66 Year
  Sex: Female

DRUGS (6)
  1. DIPYRIDAMOLE [Suspect]
     Indication: ANTIPLATELET THERAPY
  2. DIPYRIDAMOLE [Suspect]
     Indication: ISCHAEMIC STROKE
  3. ASPIRIN [Suspect]
     Indication: ANTIPLATELET THERAPY
  4. ASPIRIN [Suspect]
     Indication: ISCHAEMIC STROKE
  5. PREDNISOLONE [Concomitant]
     Indication: RHEUMATOID ARTHRITIS
  6. REMICADE [Concomitant]
     Indication: RHEUMATOID ARTHRITIS

REACTIONS (3)
  - CEREBELLAR HAEMATOMA [None]
  - POST PROCEDURAL COMPLICATION [None]
  - SUBDURAL HAEMATOMA [None]
